FAERS Safety Report 20664579 (Version 4)
Quarter: 2022Q3

REPORT INFORMATION
  Report Type: Spontaneous
  Country: US (occurrence: US)
  Receive Date: 20220401
  Receipt Date: 20220809
  Transmission Date: 20221027
  Serious: Yes (Hospitalization, Other)
  Sender: FDA-Public Use
  Company Number: US-BRISTOL-MYERS SQUIBB COMPANY-2022-013488

PATIENT
  Age: 66 Year
  Sex: Male

DRUGS (3)
  1. REVLIMID [Suspect]
     Active Substance: LENALIDOMIDE
     Indication: Plasma cell myeloma
     Dosage: TAKE 1 CAPSULE BY MOUTH EVERY DAY WITH WATER. DO NOT BREAK, CHEW, OR OPEN CAPSULES
     Route: 048
     Dates: start: 20220131
  2. REVLIMID [Suspect]
     Active Substance: LENALIDOMIDE
     Dosage: TAKE 1 CAPSULE BY MOUTH EVERY DAY WITH WATER. DO NOT BREAK, CHEW, OR OPEN CAPSULES
     Route: 048
  3. REVLIMID [Suspect]
     Active Substance: LENALIDOMIDE
     Dosage: TAKE 1 CAPSULE BY MOUTH DAILY WITH WATER. DO NOT BREAK, CHEW, OR OPEN CAPSULE
     Route: 048

REACTIONS (2)
  - Dementia [Recovered/Resolved]
  - Adverse event [Recovered/Resolved]
